FAERS Safety Report 20749456 (Version 5)
Quarter: 2022Q3

REPORT INFORMATION
  Report Type: Spontaneous
  Country: DE (occurrence: DE)
  Receive Date: 20220426
  Receipt Date: 20220809
  Transmission Date: 20221027
  Serious: Yes (Death)
  Sender: FDA-Public Use
  Company Number: DE-BAYER-2022A060406

PATIENT
  Age: 28 Year
  Sex: Male

DRUGS (6)
  1. ADEMPAS [Suspect]
     Active Substance: RIOCIGUAT
     Indication: Pulmonary arterial hypertension
     Dosage: 2.5 MG, TID
     Dates: start: 201503
  2. MACITENTAN [Concomitant]
     Active Substance: MACITENTAN
     Dosage: 10 MG DAILY
     Dates: start: 201707
  3. TREPROSTINIL [Concomitant]
     Active Substance: TREPROSTINIL
     Dosage: UNK
     Dates: start: 201510
  4. TREPROSTINIL [Concomitant]
     Active Substance: TREPROSTINIL
     Dosage: 90 NG/KG/MIN VIA LENUS PRO PUMP SYSTEM
     Route: 042
     Dates: start: 201607
  5. TORSEMIDE [Concomitant]
     Active Substance: TORSEMIDE
     Dosage: 175MG DAILY
  6. EPLERENONE [Concomitant]
     Active Substance: EPLERENONE
     Dosage: 25MG DAILY

REACTIONS (3)
  - Pulmonary hypertension [Fatal]
  - Lung transplant [Fatal]
  - Left ventricular failure [Fatal]

NARRATIVE: CASE EVENT DATE: 20220101
